FAERS Safety Report 6413425-X (Version None)
Quarter: 2009Q4

REPORT INFORMATION
  Report Type: 
  Country: None (occurrence: None)
  Receive Date: 20091026
  Receipt Date: 20091019
  Transmission Date: 20100525
  Serious: Yes (Other)
  Sender: FDA-Public Use
  Company Number: US-BAYER-200936530NA

PATIENT
  Sex: Female

DRUGS (1)
  1. MIRENA [Suspect]
     Indication: CONTRACEPTION
     Dosage: CONTINUOUS
     Route: 015
     Dates: start: 20090703, end: 20090925

REACTIONS (5)
  - ABDOMINAL DISCOMFORT [None]
  - MEDICAL DEVICE COMPLICATION [None]
  - PAIN [None]
  - SCAR [None]
  - UTERINE RUPTURE [None]
